FAERS Safety Report 19666609 (Version 1)
Quarter: 2021Q3

REPORT INFORMATION
  Report Type: Spontaneous
  Country: US (occurrence: US)
  Receive Date: 20210805
  Receipt Date: 20210805
  Transmission Date: 20211014
  Serious: No
  Sender: FDA-Public Use
  Company Number: None

PATIENT

DRUGS (3)
  1. CIPRO [Suspect]
     Active Substance: CIPROFLOXACIN HYDROCHLORIDE
  2. FACTIVE [Suspect]
     Active Substance: GEMIFLOXACIN MESYLATE
  3. LEVAQUIN [Suspect]
     Active Substance: LEVOFLOXACIN

REACTIONS (24)
  - Drug ineffective [None]
  - Tendon rupture [None]
  - Arthralgia [None]
  - Joint swelling [None]
  - Near death experience [None]
  - Ear discomfort [None]
  - Pain in extremity [None]
  - Sleep disorder [None]
  - Nervous system disorder [None]
  - Fall [None]
  - Tendonitis [None]
  - Hypoaesthesia [None]
  - Myalgia [None]
  - Urine output decreased [None]
  - Feeling cold [None]
  - Facial bones fracture [None]
  - Muscular weakness [None]
  - Nerve injury [None]
  - Balance disorder [None]
  - Eye irritation [None]
  - Pruritus [None]
  - Macular fibrosis [None]
  - Neuropathy peripheral [None]
  - Swelling [None]
